FAERS Safety Report 7419653-9 (Version None)
Quarter: 2011Q2

REPORT INFORMATION
  Report Type: 
  Country: None (occurrence: None)
  Receive Date: 20110418
  Receipt Date: 20110405
  Transmission Date: 20111010
  Serious: Yes (Other)
  Sender: FDA-Public Use
  Company Number: US-JNJFOC-20110403155

PATIENT
  Sex: Female
  Weight: 72.58 kg

DRUGS (11)
  1. PERCOCET [Concomitant]
     Indication: BACK PAIN
     Dosage: 10/325 1/2 TABLET EVERY 6 HR
     Route: 048
  2. DIAZEPAM [Concomitant]
     Indication: SLEEP DISORDER
     Dosage: AT NIGHT
     Route: 048
  3. WELLBUTRIN [Concomitant]
     Indication: BIPOLAR DISORDER
     Dosage: 75 MG 1/2 TABLET DAILY
     Route: 048
  4. AMITRIPTYLINE [Concomitant]
     Indication: SLEEP DISORDER
     Dosage: 2 TABLETS AT NIGHT
     Route: 048
  5. AMITRIPTYLINE [Concomitant]
     Indication: BIPOLAR DISORDER
     Route: 048
  6. FENTANYL-100 [Suspect]
     Route: 062
  7. FENTANYL-100 [Suspect]
     Route: 062
  8. FENTANYL-100 [Suspect]
     Indication: BACK PAIN
     Route: 062
  9. FENTANYL-100 [Suspect]
     Indication: RENAL PAIN
     Route: 062
  10. GABAPENTIN [Concomitant]
     Indication: BACK PAIN
     Route: 048
  11. ARICEPT [Concomitant]
     Indication: DEMENTIA ALZHEIMER'S TYPE
     Route: 048

REACTIONS (4)
  - TREATMENT NONCOMPLIANCE [None]
  - EXPIRED DRUG ADMINISTERED [None]
  - INTENTIONAL DRUG MISUSE [None]
  - SPINAL COLUMN STENOSIS [None]
